FAERS Safety Report 19732662 (Version 25)
Quarter: 2023Q2

REPORT INFORMATION
  Report Type: Spontaneous
  Country: CA (occurrence: CA)
  Receive Date: 20210823
  Receipt Date: 20230610
  Transmission Date: 20230722
  Serious: Yes (Hospitalization, Other)
  Sender: FDA-Public Use
  Company Number: CA-CELLTRION INC.-2020CA023892

PATIENT

DRUGS (27)
  1. INFLECTRA [Suspect]
     Active Substance: INFLIXIMAB-DYYB
     Indication: Colitis ulcerative
     Dosage: 500 MG AT 0, 2, 6 WEEKS, THEN EVERY 8 WEEKS
     Route: 041
     Dates: start: 20200629, end: 20200810
  2. INFLECTRA [Suspect]
     Active Substance: INFLIXIMAB-DYYB
     Dosage: 500 MG AT 0, 2, 6 WEEKS, THEN EVERY 8 WEEKS
     Route: 042
     Dates: start: 20200713
  3. INFLECTRA [Suspect]
     Active Substance: INFLIXIMAB-DYYB
     Dosage: 500 MG AT 0, 2, 6 WEEKS, THEN EVERY 8 WEEKS
     Route: 042
     Dates: start: 20200810
  4. INFLECTRA [Suspect]
     Active Substance: INFLIXIMAB-DYYB
     Dosage: 1000 MG (RESCUE DOSE IN 3 WEEKS)
     Route: 041
     Dates: start: 20200908, end: 20200908
  5. INFLECTRA [Suspect]
     Active Substance: INFLIXIMAB-DYYB
     Dosage: 1000 MG, EVERY 6 WEEKS
     Route: 041
     Dates: start: 20201020, end: 20210223
  6. INFLECTRA [Suspect]
     Active Substance: INFLIXIMAB-DYYB
     Dosage: 1200 MG, EVERY 6 WEEKS
     Route: 042
     Dates: start: 20210406, end: 20210518
  7. INFLECTRA [Suspect]
     Active Substance: INFLIXIMAB-DYYB
     Dosage: 1200 MG, EVERY 6 WEEKS
     Route: 042
     Dates: start: 20210518
  8. INFLECTRA [Suspect]
     Active Substance: INFLIXIMAB-DYYB
     Dosage: 1200 MG, EVERY 5 WEEKS
     Route: 042
     Dates: start: 20210622, end: 20220128
  9. INFLECTRA [Suspect]
     Active Substance: INFLIXIMAB-DYYB
     Dosage: 1200 MG, EVERY 5 WEEKS
     Route: 042
     Dates: start: 20210730
  10. INFLECTRA [Suspect]
     Active Substance: INFLIXIMAB-DYYB
     Dosage: 1200 MG, EVERY 5 WEEKS
     Route: 042
     Dates: start: 20210903
  11. INFLECTRA [Suspect]
     Active Substance: INFLIXIMAB-DYYB
     Dosage: 1200 MG, EVERY 5 WEEKS
     Route: 042
     Dates: start: 20211119
  12. INFLECTRA [Suspect]
     Active Substance: INFLIXIMAB-DYYB
     Dosage: 1200 MG, EVERY 5 WEEKS
     Route: 042
     Dates: start: 20211224
  13. INFLECTRA [Suspect]
     Active Substance: INFLIXIMAB-DYYB
     Dosage: 1200 MG, EVERY 5 WEEKS
     Route: 042
     Dates: start: 20220128
  14. INFLECTRA [Suspect]
     Active Substance: INFLIXIMAB-DYYB
     Dosage: 1200 MG (RE-INDUCTION 0, 2, 6 WEEKS), THEN EVERY 4 TO 5 WEEKS
     Route: 042
     Dates: start: 20220304, end: 20230203
  15. INFLECTRA [Suspect]
     Active Substance: INFLIXIMAB-DYYB
     Dosage: 1200 MG (RE-INDUCTION 0, 2, 6 WEEKS), EVERY 5 WEEKS
     Route: 042
     Dates: start: 20220411
  16. INFLECTRA [Suspect]
     Active Substance: INFLIXIMAB-DYYB
     Dosage: 1200 MG (RE-INDUCTION 0, 2, 6 WEEKS), EVERY 5 WEEKS
     Route: 042
     Dates: start: 20220517
  17. INFLECTRA [Suspect]
     Active Substance: INFLIXIMAB-DYYB
     Dosage: 1200 MG (RE-INDUCTION 0, 2, 6 WEEKS), EVERY 5 WEEKS
     Route: 042
     Dates: start: 20220811
  18. INFLECTRA [Suspect]
     Active Substance: INFLIXIMAB-DYYB
     Dosage: 1200 MG (RE-INDUCTION 0, 2, 6 WEEKS), EVERY 5 WEEKS
     Route: 042
     Dates: start: 20220922
  19. INFLECTRA [Suspect]
     Active Substance: INFLIXIMAB-DYYB
     Dosage: 1200 MG (RE-INDUCTION 0, 2, 6 WEEKS), EVERY 5 WEEKS
     Route: 042
     Dates: start: 20221031
  20. INFLECTRA [Suspect]
     Active Substance: INFLIXIMAB-DYYB
     Dosage: 1200 MG (RE-INDUCTION 0, 2, 6 WEEKS), EVERY 5 WEEKS
     Route: 042
     Dates: start: 20221209
  21. INFLECTRA [Suspect]
     Active Substance: INFLIXIMAB-DYYB
     Dosage: 1200 MG (RE-INDUCTION 0, 2, 6 WEEKS), EVERY 5 WEEKS
     Route: 042
     Dates: start: 20230203
  22. INSULIN NOS [Concomitant]
     Active Substance: INSULIN NOS
     Indication: Diabetes mellitus
     Dosage: UNK
  23. INSULIN NOS [Concomitant]
     Active Substance: INSULIN NOS
     Dosage: 1 DF
  24. LOPERAMIDE [Concomitant]
     Active Substance: LOPERAMIDE
     Dosage: UNK
  25. LOPERAMIDE [Concomitant]
     Active Substance: LOPERAMIDE
     Dosage: 1 DF
  26. PENTASA [Concomitant]
     Active Substance: MESALAMINE
     Dosage: UNK
  27. PENTASA [Concomitant]
     Active Substance: MESALAMINE
     Dosage: 1 DF

REACTIONS (31)
  - Urinary tract infection [Recovered/Resolved]
  - Localised infection [Not Recovered/Not Resolved]
  - Therapeutic response shortened [Unknown]
  - Off label use [Unknown]
  - Off label use [Unknown]
  - Off label use [Unknown]
  - Intentional product use issue [Unknown]
  - Product administration interrupted [Unknown]
  - Blood pressure increased [Not Recovered/Not Resolved]
  - Heart rate increased [Recovered/Resolved]
  - Abdominal discomfort [Recovered/Resolved]
  - Blood pressure fluctuation [Not Recovered/Not Resolved]
  - Pain in extremity [Unknown]
  - Bowel movement irregularity [Not Recovered/Not Resolved]
  - Skin ulcer [Not Recovered/Not Resolved]
  - Decubitus ulcer [Not Recovered/Not Resolved]
  - Nasopharyngitis [Recovered/Resolved]
  - Colitis [Unknown]
  - Mental disorder [Not Recovered/Not Resolved]
  - Stress [Not Recovered/Not Resolved]
  - Heart rate increased [Recovered/Resolved]
  - Asthenia [Unknown]
  - Pallor [Unknown]
  - Micturition urgency [Unknown]
  - Gastrointestinal disorder [Unknown]
  - Weight decreased [Unknown]
  - Mobility decreased [Unknown]
  - Blood pressure systolic increased [Unknown]
  - Scrotal swelling [Unknown]
  - Illness [Unknown]
  - COVID-19 [Unknown]

NARRATIVE: CASE EVENT DATE: 20200629
